FAERS Safety Report 20846117 (Version 3)
Quarter: 2022Q2

REPORT INFORMATION
  Report Type: Spontaneous
  Country: US (occurrence: US)
  Receive Date: 20220518
  Receipt Date: 20220616
  Transmission Date: 20220721
  Serious: No
  Sender: FDA-Public Use
  Company Number: US-PFIZER INC-202200322024

PATIENT
  Age: 59 Year
  Sex: Male
  Weight: 117.93 kg

DRUGS (2)
  1. SPIRONOLACTONE [Suspect]
     Active Substance: SPIRONOLACTONE
     Indication: Blood pressure abnormal
     Dosage: 25 MG, 1X/DAY
     Route: 048
     Dates: start: 202111
  2. SPIRONOLACTONE [Suspect]
     Active Substance: SPIRONOLACTONE
     Indication: Diuretic therapy

REACTIONS (3)
  - Breast pain [Not Recovered/Not Resolved]
  - Nipple pain [Not Recovered/Not Resolved]
  - Breast mass [Not Recovered/Not Resolved]

NARRATIVE: CASE EVENT DATE: 20210101
